FAERS Safety Report 6636687-2 (Version None)
Quarter: 2010Q1

REPORT INFORMATION
  Report Type: 
  Country: None (occurrence: None)
  Receive Date: 20100316
  Receipt Date: 20100302
  Transmission Date: 20100710
  Serious: Yes (Other)
  Sender: FDA-Public Use
  Company Number: A0850256A

PATIENT
  Sex: Female

DRUGS (4)
  1. LAMOTRIGINE [Suspect]
     Indication: DRUG USE FOR UNKNOWN INDICATION
     Route: 048
  2. PRISTIQ [Concomitant]
  3. TRAZODONE HCL [Concomitant]
  4. KLONOPIN [Concomitant]

REACTIONS (2)
  - HALLUCINATION [None]
  - MENTAL DISORDER [None]
